FAERS Safety Report 8784281 (Version 1)
Quarter: 2012Q4

REPORT INFORMATION
  Report Type: Spontaneous
  Country: IN (occurrence: None)
  Receive Date: 20120830
  Receipt Date: 20120830
  Transmission Date: 20130627
  Serious: Yes (Life-Threatening, Other)
  Sender: FDA-Public Use
  Company Number: 2012P1054888

PATIENT
  Age: 38 Year
  Sex: Female
  Weight: 50 kg

DRUGS (2)
  1. EPINEPHRINE [Suspect]
     Indication: EPIDURAL TEST DOSE
     Route: 008
  2. LIDOCAINE (NO PREF. NAME) [Suspect]
     Indication: EPIDURAL TEST DOSE
     Route: 008

REACTIONS (9)
  - Paraesthesia oral [None]
  - Muscle twitching [None]
  - Loss of consciousness [None]
  - Convulsion [None]
  - Sinus bradycardia [None]
  - Cardiopulmonary failure [None]
  - Incorrect route of drug administration [None]
  - No therapeutic response [None]
  - Pulse absent [None]
